FAERS Safety Report 6228026-6 (Version None)
Quarter: 2009Q2

REPORT INFORMATION
  Report Type: 
  Country: None (occurrence: None)
  Receive Date: 20090610
  Receipt Date: 20090610
  Transmission Date: 20091009
  Serious: Yes (Hospitalization)
  Sender: FDA-Public Use
  Company Number: None

PATIENT
  Age: 74 Year
  Sex: Male
  Weight: 71.5 kg

DRUGS (2)
  1. CARBOPLATIN [Suspect]
     Indication: NEOPLASM
     Dosage: 550 MG ONCE IV
     Route: 042
     Dates: start: 20090526, end: 20090526
  2. DOCETAXEL [Suspect]
     Indication: NEOPLASM
     Dosage: 140 MG ONCE IV
     Route: 042
     Dates: start: 20090526, end: 20090526

REACTIONS (1)
  - FEBRILE NEUTROPENIA [None]
